FAERS Safety Report 5950761-5 (Version None)
Quarter: 2008Q4

REPORT INFORMATION
  Report Type: 
  Country: None (occurrence: None)
  Receive Date: 20081112
  Receipt Date: 20081106
  Transmission Date: 20090506
  Serious: No
  Sender: FDA-Public Use
  Company Number: US-B.I. PHARMACEUTICALS,INC./RIDGEFIELD-2008-BP-07411BP

PATIENT
  Sex: Female

DRUGS (10)
  1. SPIRIVA [Suspect]
     Indication: ASTHMA
     Dosage: 18MCG
  2. CELEBREX [Concomitant]
  3. NEXIUM [Concomitant]
  4. LEVOXYLO [Concomitant]
  5. METOPROLOL SUCCINATE [Concomitant]
  6. ADVAIR DISKUS 100/50 [Concomitant]
  7. MAXALT-MLT [Concomitant]
     Indication: MIGRAINE
  8. LYRICA [Concomitant]
  9. VILIAM [Concomitant]
  10. FISH OIL [Concomitant]

REACTIONS (3)
  - DRUG INEFFECTIVE [None]
  - DYSPNOEA [None]
  - THROAT IRRITATION [None]
